FAERS Safety Report 19233268 (Version 1)
Quarter: 2021Q2

REPORT INFORMATION
  Report Type: Report from Study
  Country: US (occurrence: US)
  Receive Date: 20210507
  Receipt Date: 20210507
  Transmission Date: 20210717
  Serious: Yes (Hospitalization)
  Sender: FDA-Public Use
  Company Number: US-JNJFOC-20210457008

PATIENT

DRUGS (13)
  1. ONDANSETRON [Concomitant]
     Active Substance: ONDANSETRON
  2. DARATUMUMAB [Suspect]
     Active Substance: DARATUMUMAB
     Indication: PLASMA CELL MYELOMA
     Route: 065
  3. FEXOFENADINE [Concomitant]
     Active Substance: FEXOFENADINE HYDROCHLORIDE
  4. PREDNISONE. [Concomitant]
     Active Substance: PREDNISONE
  5. METHYLPREDNISOLONE. [Concomitant]
     Active Substance: METHYLPREDNISOLONE
  6. CETRIZINE [Concomitant]
     Active Substance: CETIRIZINE HYDROCHLORIDE
  7. DEXAMETHASONE. [Concomitant]
     Active Substance: DEXAMETHASONE
  8. FAMOTIDINE. [Concomitant]
     Active Substance: FAMOTIDINE
  9. LORAZEPAM. [Concomitant]
     Active Substance: LORAZEPAM
  10. PREDNISONE. [Concomitant]
     Active Substance: PREDNISONE
  11. ACETAMINOPHEN. [Concomitant]
     Active Substance: ACETAMINOPHEN
  12. DIPHENHYDRAMINE. [Concomitant]
     Active Substance: DIPHENHYDRAMINE
  13. MONTELUKAST [Concomitant]
     Active Substance: MONTELUKAST SODIUM

REACTIONS (15)
  - Abdominal pain upper [Unknown]
  - Back pain [Unknown]
  - Oropharyngeal pain [Unknown]
  - Abdominal pain [Unknown]
  - Retching [Unknown]
  - Restlessness [Unknown]
  - Muscular weakness [Unknown]
  - Chills [Unknown]
  - Diarrhoea [Unknown]
  - Nausea [Unknown]
  - Tachycardia [Unknown]
  - Sinus bradycardia [Unknown]
  - Headache [Unknown]
  - Infusion related reaction [Unknown]
  - Vomiting [Unknown]
